FAERS Safety Report 7599337-7 (Version None)
Quarter: 2011Q3

REPORT INFORMATION
  Report Type: 
  Country: None (occurrence: None)
  Receive Date: 20110711
  Receipt Date: 20100304
  Transmission Date: 20111222
  Serious: Yes (Death, Other)
  Sender: FDA-Public Use
  Company Number: US-BAYER-201015586NA

PATIENT
  Age: 50 Year
  Sex: Female
  Weight: 102 kg

DRUGS (5)
  1. CARDIZEM [Concomitant]
     Dosage: 120MG,TWO TABLETS TWICE DAILY
     Route: 048
  2. FENTANYL [Concomitant]
  3. AMICAR [Concomitant]
     Indication: CORONARY REVASCULARISATION
     Dosage: 10 MG, UNK
  4. TRASYLOL [Suspect]
     Indication: CORONARY ARTERY BYPASS
     Dosage: UNK
  5. VASOTEC [Concomitant]
     Dosage: 10 MG, QD
     Route: 048

REACTIONS (8)
  - DEATH [None]
  - RENAL FAILURE ACUTE [None]
  - ACUTE RESPIRATORY DISTRESS SYNDROME [None]
  - PLEURAL EFFUSION [None]
  - INJURY [None]
  - CARDIO-RESPIRATORY ARREST [None]
  - RENAL FAILURE [None]
  - PAIN [None]
